FAERS Safety Report 9337177 (Version 2)
Quarter: 2013Q3

REPORT INFORMATION
  Report Type: Spontaneous
  Country: CA (occurrence: CA)
  Receive Date: 20130607
  Receipt Date: 20130903
  Transmission Date: 20140515
  Serious: Yes (Other)
  Sender: FDA-Public Use
  Company Number: CA-GLAXOSMITHKLINE-A1006529A

PATIENT
  Age: 39 Year
  Sex: Female
  Weight: 86 kg

DRUGS (5)
  1. BENLYSTA [Suspect]
     Indication: SYSTEMIC LUPUS ERYTHEMATOSUS
     Dosage: 860MG SEE DOSAGE TEXT
     Route: 042
     Dates: start: 20121221
  2. GRAVOL [Concomitant]
     Route: 042
  3. TYLENOL [Concomitant]
  4. PREDNISONE [Concomitant]
     Dosage: 15MG PER DAY
     Route: 048
  5. PLAQUENIL [Concomitant]

REACTIONS (12)
  - Migraine [Unknown]
  - Local swelling [Recovering/Resolving]
  - Pain [Unknown]
  - Hepatic enzyme increased [Unknown]
  - Joint swelling [Recovering/Resolving]
  - Rash [Unknown]
  - Pyrexia [Unknown]
  - Cholecystectomy [Unknown]
  - Cholelithiasis [Unknown]
  - Fibromyalgia [Unknown]
  - Erythema multiforme [Unknown]
  - Catheter site discharge [Recovered/Resolved]
